FAERS Safety Report 6635760-2 (Version None)
Quarter: 2010Q1

REPORT INFORMATION
  Report Type: 
  Country: None (occurrence: None)
  Receive Date: 20100309
  Receipt Date: 20100224
  Transmission Date: 20100710
  Serious: Yes (Hospitalization, Other)
  Sender: FDA-Public Use
  Company Number: DSM-2010-00182

PATIENT
  Age: 68 Year
  Sex: Female
  Weight: 61 kg

DRUGS (11)
  1. OLMESARTAN MEDOXOMIL/AMLODIPINE/HYDROCHLOROTHIAZIDE [Suspect]
     Indication: ESSENTIAL HYPERTENSION
     Dosage: 40/5 M (1 IN 1 D), ORAL
     Route: 048
     Dates: start: 20090406, end: 20090420
  2. UNI DIAMICRON (GLICLAZIDE)(30 MILLIGRAM)(GLICLAZIDE) [Concomitant]
  3. TENORETIC MITIS (ATENOLOL/CHLORTALIDON)(CHLORTALIDONE, ATENOLOL)(CHLOR [Concomitant]
  4. PLAVIX (CLOPIDOGREL SULFATE) (75 MILLIGRAM)(CLOPIDOGREL SULFATE) [Concomitant]
  5. PANTOZOL (PANTOPRAZOLE SODIUM)(40 MILLIGRAM)(PANTOPRAZOLE SODIUM) [Concomitant]
  6. METATOP (LORMETAZEPAM) (2 MILLIGRAM) (LORMETAZEPAM) [Concomitant]
  7. LIPITOR (ATORVASTATIN) (40 MILLIGRAM) (ATORVASTATIN) [Concomitant]
  8. GLUCOPHAGE (METFORMIN) (850 MILLIGRAM) (METFORMIN) [Concomitant]
  9. CORUNO (MOLSIDOMINE)(16 MILLIGRAM)(MOLSIDOMINE) [Concomitant]
  10. CEDOCARD (ISOSORBIDE DINITRATE) (5 MILLIGRAM)(ISOSORBIDE [Concomitant]
  11. CARDIOASPIRINE (ACETYLSALICYLIC ACID) (100 MILLIGRAM) (ACETYLSALICYLIC [Concomitant]

REACTIONS (2)
  - RENAL FAILURE ACUTE [None]
  - RENAL TUBULAR NECROSIS [None]
